FAERS Safety Report 6634344-X (Version None)
Quarter: 2010Q1

REPORT INFORMATION
  Report Type: 
  Country: None (occurrence: None)
  Receive Date: 20100315
  Receipt Date: 20100211
  Transmission Date: 20100710
  Serious: No
  Sender: FDA-Public Use
  Company Number: US-BAYER-201012017BCC

PATIENT
  Age: 57 Year
  Sex: Male
  Weight: 68 kg

DRUGS (3)
  1. ALEVE (CAPLET) [Suspect]
     Indication: TOOTHACHE
     Dosage: UNIT DOSE: 220 MG
     Route: 048
     Dates: start: 20100211
  2. ORAJEL [Concomitant]
     Dates: start: 20100211
  3. PENICILLIN [Concomitant]
     Dates: start: 20100211

REACTIONS (1)
  - HYPOAESTHESIA ORAL [None]
